FAERS Safety Report 9274834 (Version 1)
Quarter: 2013Q2

REPORT INFORMATION
  Report Type: Spontaneous
  Country: MX (occurrence: None)
  Receive Date: 20130429
  Receipt Date: 20130429
  Transmission Date: 20140414
  Serious: No
  Sender: FDA-Public Use
  Company Number: 1304MEX012656

PATIENT
  Age: 2 Year
  Sex: Male

DRUGS (1)
  1. CEDAX (CEFTIBUTEN) CAPSULE [Suspect]
     Route: 048

REACTIONS (1)
  - Rash [None]
